FAERS Safety Report 7868502-3 (Version None)
Quarter: 2011Q4

REPORT INFORMATION
  Report Type: 
  Country: None (occurrence: None)
  Receive Date: 20111028
  Receipt Date: 20101213
  Transmission Date: 20120403
  Serious: No
  Sender: FDA-Public Use
  Company Number: US-AMGEN-USASP2010008807

PATIENT
  Age: 76 Year
  Weight: 54.422 kg

DRUGS (6)
  1. NORVASC [Concomitant]
  2. SIMVASTATIN [Concomitant]
     Dosage: 10 MG, UNK
  3. METOPROLOL TARTRATE [Concomitant]
     Dosage: 25 MG, UNK
  4. ENBREL [Suspect]
     Indication: PRODUCT USED FOR UNKNOWN INDICATION
     Dosage: 50 MG, QWK
     Route: 058
  5. METHOTREXATE [Concomitant]
     Dosage: 2.5 MG, UNK
  6. ASPIRIN [Concomitant]
     Dosage: 81 UNK, UNK

REACTIONS (3)
  - HEADACHE [None]
  - ABDOMINAL PAIN LOWER [None]
  - PAIN IN JAW [None]
